FAERS Safety Report 5274017-1 (Version None)
Quarter: 2007Q1

REPORT INFORMATION
  Report Type: 
  Country: None (occurrence: None)
  Receive Date: 20070323
  Receipt Date: 20070314
  Transmission Date: 20070707
  Serious: Yes (Hospitalization, Disabling)
  Sender: FDA-Public Use
  Company Number: AT-GLAXOSMITHKLINE-B0463165A

PATIENT
  Age: 58 Year
  Sex: Female

DRUGS (6)
  1. AVANDAMET [Suspect]
     Dosage: .5TAB TWICE PER DAY
     Route: 048
     Dates: start: 20060724
  2. LESCOL [Concomitant]
     Route: 048
  3. LOFTYL [Concomitant]
     Route: 048
  4. ACECOMB [Concomitant]
     Route: 048
  5. ACEMIN [Concomitant]
     Route: 048
  6. DICLOFENAC SODIUM [Concomitant]
     Route: 048

REACTIONS (2)
  - FRACTURE [None]
  - NEUROPATHIC ARTHROPATHY [None]
